FAERS Safety Report 21925304 (Version 1)
Quarter: 2023Q1

REPORT INFORMATION
  Report Type: Spontaneous
  Country: FR (occurrence: FR)
  Receive Date: 20230130
  Receipt Date: 20230130
  Transmission Date: 20230417
  Serious: Yes (Other)
  Sender: FDA-Public Use
  Company Number: None

PATIENT
  Age: 44 Year
  Sex: Male
  Weight: 74 kg

DRUGS (3)
  1. CERTICAN [Suspect]
     Active Substance: EVEROLIMUS
     Indication: Lung transplant
     Dosage: 0.5 MG, QD (COMPRESSED)
     Route: 048
     Dates: start: 20221102
  2. PROGRAF [Suspect]
     Active Substance: TACROLIMUS
     Indication: Lung transplant
     Dosage: 1 MG, QD
     Route: 048
     Dates: start: 202102
  3. AUGMENTIN [Suspect]
     Active Substance: AMOXICILLIN\CLAVULANATE POTASSIUM
     Indication: Bronchopneumopathy
     Dosage: 3 G, QD (ADULTS)
     Route: 042
     Dates: start: 20221121, end: 20221126

REACTIONS (1)
  - Neutropenia [Recovering/Resolving]

NARRATIVE: CASE EVENT DATE: 20221123
